FAERS Safety Report 14648400 (Version 2)
Quarter: 2019Q1

REPORT INFORMATION
  Report Type: Spontaneous
  Country: HU (occurrence: HU)
  Receive Date: 20180316
  Receipt Date: 20190131
  Transmission Date: 20190417
  Serious: No
  Sender: FDA-Public Use
  Company Number: HU-009507513-1803HUN006415

PATIENT
  Age: 13 Year
  Sex: Male

DRUGS (5)
  1. FLUTICASONE. [Suspect]
     Active Substance: FLUTICASONE
     Indication: ASTHMA
     Dosage: UNK
  2. MONTELUKAST SODIUM. [Suspect]
     Active Substance: MONTELUKAST SODIUM
     Indication: ASTHMA
     Dosage: UNK
     Route: 048
  3. DIAPHYLLIN [Suspect]
     Active Substance: AMINOPHYLLINE
     Indication: ASTHMA
     Dosage: UNK
  4. BUDESONIDE (+) FORMOTEROL FUMARATE [Suspect]
     Active Substance: BUDESONIDE\FORMOTEROL FUMARATE
     Indication: ASTHMA
     Dosage: UNK
     Route: 065
  5. FLUTICASONE PROPIONATE (+) SALMETEROL XINAFOATE [Suspect]
     Active Substance: FLUTICASONE PROPIONATE\SALMETEROL XINAFOATE
     Indication: ASTHMA
     Dosage: UNK

REACTIONS (1)
  - Drug ineffective [Unknown]
